FAERS Safety Report 7525409-9 (Version None)
Quarter: 2011Q2

REPORT INFORMATION
  Report Type: 
  Country: None (occurrence: None)
  Receive Date: 20110606
  Receipt Date: 20110525
  Transmission Date: 20111010
  Serious: Yes (Hospitalization, Other)
  Sender: FDA-Public Use
  Company Number: JP-PFIZER INC-2011118387

PATIENT
  Age: 76 Year
  Sex: Male

DRUGS (5)
  1. HALCION [Concomitant]
     Dosage: UNK
     Dates: end: 20110522
  2. AMARYL [Concomitant]
     Dosage: UNK
     Dates: end: 20110522
  3. ACTOS [Concomitant]
     Dosage: UNK
     Dates: end: 20110522
  4. MIGLITOL [Suspect]
     Indication: DIABETES MELLITUS
     Dosage: 150 MG, UNK
     Route: 048
     Dates: end: 20110522
  5. NORVASC [Concomitant]
     Dosage: UNK
     Dates: end: 20110522

REACTIONS (1)
  - ILEUS [None]
